FAERS Safety Report 7400609-7 (Version None)
Quarter: 2011Q1

REPORT INFORMATION
  Report Type: 
  Country: None (occurrence: None)
  Receive Date: 20110329
  Receipt Date: 20110321
  Transmission Date: 20110831
  Serious: Yes (Hospitalization)
  Sender: FDA-Public Use
  Company Number: UTC-005837

PATIENT
  Age: 46 Year
  Sex: Female
  Weight: 117 kg

DRUGS (3)
  1. TRACLEER [Concomitant]
  2. REMODULIN [Suspect]
     Indication: PULMONARY ARTERIAL HYPERTENSION
     Dosage: 17.28 UG/KG (0.012 UG/KG,1 IN 1 MIN),SUBCUTANEOUS
     Route: 058
     Dates: start: 20110125
  3. DIURETICS (DIURETICS) [Concomitant]

REACTIONS (1)
  - INFUSION SITE INFECTION [None]
